FAERS Safety Report 20618502 (Version 1)
Quarter: 2022Q1

REPORT INFORMATION
  Report Type: Spontaneous
  Country: US (occurrence: US)
  Receive Date: 20220321
  Receipt Date: 20220321
  Transmission Date: 20220423
  Serious: No
  Sender: FDA-Public Use
  Company Number: US-BIOGEN-2022BI01106434

PATIENT
  Sex: Female

DRUGS (1)
  1. SPINRAZA [Suspect]
     Active Substance: NUSINERSEN
     Indication: Spinal muscular atrophy
     Dosage: PATIENT HAS RECEIVED 13 SPINRAZA
     Route: 065
     Dates: start: 20180613, end: 20210922

REACTIONS (2)
  - Injury [Unknown]
  - Pain [Unknown]
